FAERS Safety Report 4734808-X (Version None)
Quarter: 2005Q3

REPORT INFORMATION
  Report Type: 
  Country: None (occurrence: None)
  Receive Date: 20050729
  Receipt Date: 20050713
  Transmission Date: 20060218
  Serious: Yes (Other)
  Sender: FDA-Public Use
  Company Number: USA0507102753

PATIENT
  Age: 60 Year
  Sex: Female

DRUGS (4)
  1. CYMBALTA [Suspect]
     Indication: DEPRESSION
     Dosage: 60 MG
     Dates: start: 20050301, end: 20050711
  2. OPIATES [Concomitant]
  3. SYNTHROID [Concomitant]
  4. TRAZODONE (TRAZODONE) [Concomitant]

REACTIONS (2)
  - DRUG DETOXIFICATION [None]
  - DYSKINESIA [None]
